FAERS Safety Report 17135385 (Version 1)
Quarter: 2019Q4

REPORT INFORMATION
  Report Type: Spontaneous
  Country: US (occurrence: US)
  Receive Date: 20191210
  Receipt Date: 20191210
  Transmission Date: 20200122
  Serious: Yes (Hospitalization)
  Sender: FDA-Public Use
  Company Number: NVSC2019US051077

PATIENT
  Age: 71 Year
  Weight: 96.36 kg

DRUGS (2)
  1. NETSPOT [Suspect]
     Active Substance: DOTATATE GALLIUM GA-68
     Indication: SMALL INTESTINE CARCINOMA
     Dosage: 5.72 UG
     Route: 065
     Dates: start: 20191126
  2. SALINE [Concomitant]
     Active Substance: SODIUM CHLORIDE
     Indication: POSITRON EMISSION TOMOGRAM
     Dosage: 250 ML, UNKNOWN FREQUENCY
     Route: 042
     Dates: start: 20191126

REACTIONS (3)
  - Back pain [Unknown]
  - Chest pain [Unknown]
  - Abdominal pain [Unknown]

NARRATIVE: CASE EVENT DATE: 20191126
